FAERS Safety Report 25668223 (Version 1)
Quarter: 2025Q3

REPORT INFORMATION
  Report Type: Other
  Country: EU (occurrence: EU)
  Receive Date: 20250812
  Receipt Date: 20250812
  Transmission Date: 20251021
  Serious: Yes (Life-Threatening, Hospitalization)
  Sender: Atnahs Healthcare
  Company Number: EU-ATNAHS-2025-PMNV-FR000354

PATIENT

DRUGS (2)
  1. VALIUM [Suspect]
     Active Substance: DIAZEPAM
     Indication: Intentional overdose
     Route: 048
     Dates: start: 20250616, end: 20250616
  2. LOXAPINE [Suspect]
     Active Substance: LOXAPINE
     Indication: Intentional overdose
     Route: 048
     Dates: start: 20250616, end: 20250616

REACTIONS (3)
  - Coma [Recovered/Resolved]
  - Poisoning deliberate [Recovered/Resolved]
  - Hypotonia [Recovered/Resolved]

NARRATIVE: CASE EVENT DATE: 20250616
